FAERS Safety Report 6735141-7 (Version None)
Quarter: 2010Q2

REPORT INFORMATION
  Report Type: 
  Country: None (occurrence: None)
  Receive Date: 20100520
  Receipt Date: 20100520
  Transmission Date: 20101027
  Serious: Yes (Disabling, Other)
  Sender: FDA-Public Use
  Company Number: None

PATIENT
  Age: 63 Year
  Sex: Female
  Weight: 107.9561 kg

DRUGS (4)
  1. ABILIFY [Suspect]
  2. CELEXA [Suspect]
  3. DEPAKENE [Suspect]
  4. ATENOLOL [Suspect]

REACTIONS (1)
  - INSOMNIA [None]
